FAERS Safety Report 8818523 (Version 1)
Quarter: 2012Q4

REPORT INFORMATION
  Report Type: 
  Country: FR (occurrence: FR)
  Receive Date: 20121001
  Receipt Date: 20121001
  Transmission Date: 20130627
  Serious: Yes (Other)
  Sender: FDA-Public Use
  Company Number: FR-ROCHE-1132375

PATIENT
  Age: 60 Year
  Sex: Male

DRUGS (3)
  1. TAMIFLU [Suspect]
     Indication: INFLUENZA
     Route: 065
     Dates: start: 20120303, end: 20120304
  2. AUGMENTIN [Suspect]
     Indication: LUNG DISORDER
     Route: 065
     Dates: start: 20120303, end: 20120311
  3. TAVANIC [Suspect]
     Indication: LUNG DISORDER
     Route: 065
     Dates: start: 20120303, end: 20120304

REACTIONS (1)
  - Cholestasis [Recovered/Resolved]
